FAERS Safety Report 4435128-3 (Version None)
Quarter: 2004Q3

REPORT INFORMATION
  Report Type: 
  Country: None (occurrence: None)
  Receive Date: 20040827
  Receipt Date: 20040827
  Transmission Date: 20050211
  Serious: Yes (Hospitalization)
  Sender: FDA-Public Use
  Company Number: None

PATIENT
  Age: 34 Year
  Sex: Female

DRUGS (2)
  1. NORTRIPTYLINE HCL [Suspect]
  2. ESCITALOPRAM OXALATE [Concomitant]

REACTIONS (4)
  - DRUG INTERACTION [None]
  - DRUG LEVEL INCREASED [None]
  - DYSPNOEA [None]
  - TACHYCARDIA [None]
